FAERS Safety Report 5740170-6 (Version None)
Quarter: 2008Q2

REPORT INFORMATION
  Report Type: 
  Country: None (occurrence: None)
  Receive Date: 20080516
  Receipt Date: 20080505
  Transmission Date: 20081010
  Serious: Yes (Hospitalization)
  Sender: FDA-Public Use
  Company Number: US-ROCHE-562611

PATIENT
  Sex: Male
  Weight: 108 kg

DRUGS (6)
  1. PEG-INTERFERON A-2A (RO 25-8310) [Suspect]
     Indication: HEPATITIS C
     Route: 065
     Dates: start: 20071026, end: 20080425
  2. RIBAVIRIN [Suspect]
     Indication: HEPATITIS C
     Dosage: DOSE: TWO IN MORNING AND TWO IN THE EVENING
     Route: 048
     Dates: start: 20071026, end: 20080301
  3. ACTOS [Concomitant]
     Dosage: DOSE REPORTED AS 2 X 1 DAY
  4. LASIX [Concomitant]
     Indication: OEDEMA
  5. BENICAR [Concomitant]
     Indication: HYPERTENSION
  6. PREVACID [Concomitant]

REACTIONS (4)
  - CELLULITIS [None]
  - PSORIASIS [None]
  - RASH [None]
  - RENAL FAILURE [None]
